FAERS Safety Report 19674673 (Version 2)
Quarter: 2021Q4

REPORT INFORMATION
  Report Type: Report from Study
  Country: US (occurrence: US)
  Receive Date: 20210809
  Receipt Date: 20211008
  Transmission Date: 20220303
  Serious: Yes (Other)
  Sender: FDA-Public Use
  Company Number: US-BAYER-2021-177211

PATIENT
  Age: 63 Year
  Sex: Male

DRUGS (2)
  1. STIVARGA [Suspect]
     Active Substance: REGORAFENIB
     Indication: Colon cancer
     Dosage: DAILY DOSE 160 MG FOR 21 DAYS
     Route: 048
     Dates: start: 20210622, end: 20210921
  2. STIVARGA [Suspect]
     Active Substance: REGORAFENIB
     Indication: Metastases to liver
     Dosage: UNK

REACTIONS (6)
  - Limb mass [Recovering/Resolving]
  - Colon cancer [Unknown]
  - Rash macular [Recovering/Resolving]
  - Blood pressure increased [None]
  - Fatigue [None]
  - Paranasal sinus hypersecretion [None]
